FAERS Safety Report 5175277-8 (Version None)
Quarter: 2006Q4

REPORT INFORMATION
  Report Type: 
  Country: None (occurrence: None)
  Receive Date: 20061211
  Receipt Date: 20061211
  Transmission Date: 20070319
  Serious: Yes (Death, Hospitalization)
  Sender: FDA-Public Use
  Company Number: None

PATIENT
  Sex: Male
  Weight: 95.5 kg

DRUGS (1)
  1. TEMOZOLOMIDE [Suspect]
     Dosage: 2240 MG

REACTIONS (1)
  - DEATH [None]
